FAERS Safety Report 14056660 (Version 2)
Quarter: 2018Q2

REPORT INFORMATION
  Report Type: Spontaneous
  Country: LB (occurrence: LB)
  Receive Date: 20171006
  Receipt Date: 20180502
  Transmission Date: 20180711
  Serious: Yes (Hospitalization, Other)
  Sender: FDA-Public Use
  Company Number: LB-PFIZER INC-2017421176

PATIENT
  Age: 51 Year
  Sex: Male

DRUGS (1)
  1. METHOTREXATE SODIUM. [Suspect]
     Active Substance: METHOTREXATE SODIUM
     Indication: PSORIASIS
     Dosage: 20 MG, DAILY
     Route: 048

REACTIONS (13)
  - Inappropriate schedule of drug administration [Recovering/Resolving]
  - Asthenia [Recovering/Resolving]
  - Mucocutaneous ulceration [Recovering/Resolving]
  - Toxicity to various agents [Recovering/Resolving]
  - Acute generalised exanthematous pustulosis [Recovering/Resolving]
  - Overdose [Recovering/Resolving]
  - Condition aggravated [Recovering/Resolving]
  - Neutropenia [Recovering/Resolving]
  - Pyrexia [Recovering/Resolving]
  - Vasculitis [Recovering/Resolving]
  - Skin plaque [Recovering/Resolving]
  - Treatment noncompliance [Unknown]
  - Off label use [Unknown]
